FAERS Safety Report 6235848-4 (Version None)
Quarter: 2009Q2

REPORT INFORMATION
  Report Type: 
  Country: None (occurrence: None)
  Receive Date: 20090617
  Receipt Date: 20090617
  Transmission Date: 20091009
  Serious: No
  Sender: FDA-Public Use
  Company Number: None

PATIENT
  Sex: Male
  Weight: 122.4712 kg

DRUGS (2)
  1. ZICAM COLD REMEDY NASAL GEL 15 ML [Suspect]
     Indication: NASAL CONGESTION
     Dosage: 2 SQUIRTS AS NEEDED NASAL
     Route: 045
     Dates: start: 20081101, end: 20090616
  2. ZICAM COLD REMEDY NASAL GEL 15 M [Suspect]

REACTIONS (4)
  - ANOSMIA [None]
  - BRONCHITIS [None]
  - EAR DISORDER [None]
  - MASS [None]
